FAERS Safety Report 9046187 (Version 1)
Quarter: 2013Q1

REPORT INFORMATION
  Report Type: Spontaneous
  Country: DE (occurrence: DE)
  Receive Date: 20130201
  Receipt Date: 20130201
  Transmission Date: 20140127
  Serious: Yes (Hospitalization, Other)
  Sender: FDA-Public Use
  Company Number: PHHY2012DE103325

PATIENT
  Age: 38 Year
  Sex: Male
  Weight: 89 kg

DRUGS (1)
  1. TASIGNA [Suspect]
     Indication: CHRONIC MYELOID LEUKAEMIA
     Dosage: 300 MG, BID
     Route: 048
     Dates: start: 20070725, end: 20121011

REACTIONS (9)
  - Oedematous pancreatitis [Recovering/Resolving]
  - Abdominal pain upper [Recovering/Resolving]
  - Nausea [Recovering/Resolving]
  - Vomiting [Recovering/Resolving]
  - Hepatitis [Unknown]
  - Jaundice [Recovered/Resolved]
  - Fatigue [Recovered/Resolved]
  - Hyperbilirubinaemia [Recovered/Resolved]
  - Diabetes mellitus [Recovered/Resolved]
